FAERS Safety Report 6502681-5 (Version None)
Quarter: 2009Q4

REPORT INFORMATION
  Report Type: 
  Country: None (occurrence: None)
  Receive Date: 20091217
  Receipt Date: 20091204
  Transmission Date: 20100525
  Serious: Yes (Hospitalization)
  Sender: FDA-Public Use
  Company Number: CA-BRISTOL-MYERS SQUIBB COMPANY-14669261

PATIENT
  Age: 47 Year
  Sex: Female

DRUGS (4)
  1. REYATAZ [Suspect]
     Indication: HIV INFECTION
     Route: 048
     Dates: start: 20080820, end: 20081006
  2. ABACAVIR + LAMIVUDINE [Suspect]
     Indication: HIV INFECTION
     Dosage: 1 DF=600/300MG
  3. EFFEXOR [Concomitant]
  4. ISONIAZID [Concomitant]
     Indication: TUBERCULOSIS
     Dates: start: 20071201, end: 20081201

REACTIONS (3)
  - CHOLECYSTITIS ACUTE [None]
  - CHOLELITHIASIS [None]
  - HEPATITIS CHOLESTATIC [None]
